FAERS Safety Report 7677783-0 (Version None)
Quarter: 2011Q3

REPORT INFORMATION
  Report Type: 
  Country: None (occurrence: None)
  Receive Date: 20110811
  Receipt Date: 20110804
  Transmission Date: 20111222
  Serious: Yes (Other)
  Sender: FDA-Public Use
  Company Number: US-JNJFOC-20110201860

PATIENT
  Sex: Male
  Weight: 84.28 kg

DRUGS (3)
  1. LEVAQUIN [Suspect]
     Indication: RESPIRATORY TRACT INFECTION
     Route: 048
  2. LEVAQUIN [Suspect]
     Indication: INFLUENZA LIKE ILLNESS
     Route: 048
  3. LEVAQUIN [Suspect]
     Indication: PNEUMONITIS
     Route: 048

REACTIONS (9)
  - NEUROPATHY PERIPHERAL [None]
  - ARTHRITIS [None]
  - DEEP VEIN THROMBOSIS [None]
  - DEPRESSION [None]
  - POLYMYOSITIS [None]
  - ANGIOEDEMA [None]
  - CHEST PAIN [None]
  - SWELLING [None]
  - PLANTAR FASCIITIS [None]
